FAERS Safety Report 5831983-0 (Version None)
Quarter: 2008Q3

REPORT INFORMATION
  Report Type: 
  Country: None (occurrence: None)
  Receive Date: 20080731
  Receipt Date: 20080716
  Transmission Date: 20090109
  Serious: Yes (Other)
  Sender: FDA-Public Use
  Company Number: ENC200800111

PATIENT
  Age: 77 Year
  Sex: Male

DRUGS (10)
  1. ARGATROBAN [Suspect]
     Indication: ANTITHROMBIN III DECREASED
     Dosage: 50 MG, THREE TIME A WEEK, INTRAVENOUS
     Route: 042
     Dates: end: 20080429
  2. ALPROSTADIL [Concomitant]
  3. PRECIPITATED CALCIUM CARBONATE (CALTAN) (CALCIUM CARBONATE) [Concomitant]
  4. ALFAROL (ALFACALCIDOL) [Concomitant]
  5. AMOBAN (ZOPICLONE) [Concomitant]
  6. DOPS (DROXIDOPA) [Concomitant]
  7. ALESION (EPINASTINE HYDROCHLORIDE) [Concomitant]
  8. DIOVAN [Concomitant]
  9. NORVASC [Concomitant]
  10. NESP (NOVEL ERYTHROPOIESIS STIMULATING PROTEIN) [Concomitant]

REACTIONS (1)
  - ANAPHYLACTOID REACTION [None]
